FAERS Safety Report 7900929-3 (Version None)
Quarter: 2011Q4

REPORT INFORMATION
  Report Type: 
  Country: None (occurrence: None)
  Receive Date: 20111108
  Receipt Date: 20111025
  Transmission Date: 20120403
  Serious: Yes (Other)
  Sender: FDA-Public Use
  Company Number: CA-ELI_LILLY_AND_COMPANY-CA201110006607

PATIENT
  Sex: Male

DRUGS (8)
  1. RISPERIDONE [Concomitant]
  2. LOXAPINE [Concomitant]
  3. VALPROATE SODIUM [Concomitant]
  4. CLONAZEPAM [Concomitant]
  5. ATIVAN [Concomitant]
  6. ZYPREXA [Suspect]
     Indication: BIPOLAR DISORDER
     Dosage: 5 MG, EACH EVENING
  7. VALPROIC ACID [Concomitant]
  8. ZYPREXA [Suspect]
     Dosage: 10 MG, EACH EVENING

REACTIONS (3)
  - DIABETES MELLITUS [None]
  - MYOCARDIAL INFARCTION [None]
  - GRAND MAL CONVULSION [None]
